FAERS Safety Report 6150070-8 (Version None)
Quarter: 2009Q2

REPORT INFORMATION
  Report Type: 
  Country: None (occurrence: None)
  Receive Date: 20090407
  Receipt Date: 20090407
  Transmission Date: 20091009
  Serious: Yes (Other)
  Sender: FDA-Public Use
  Company Number: None

PATIENT
  Age: 87 Year
  Sex: Female
  Weight: 68.9467 kg

DRUGS (1)
  1. GABAPENTIN [Suspect]
     Indication: BACK PAIN
     Dates: start: 20090128

REACTIONS (5)
  - EXCORIATION [None]
  - JOINT SWELLING [None]
  - OEDEMA PERIPHERAL [None]
  - SKIN DISORDER [None]
  - WOUND SECRETION [None]
